FAERS Safety Report 5529615-4 (Version None)
Quarter: 2007Q4

REPORT INFORMATION
  Report Type: 
  Country: None (occurrence: None)
  Receive Date: 20071129
  Receipt Date: 20071119
  Transmission Date: 20080405
  Serious: Yes (Hospitalization, Other)
  Sender: FDA-Public Use
  Company Number: JP-PFIZER INC-2007074678

PATIENT
  Sex: Female

DRUGS (4)
  1. CAMPTOSAR [Suspect]
     Indication: FALLOPIAN TUBE CANCER
     Dosage: DAILY DOSE:50MG
     Route: 042
     Dates: start: 20070706, end: 20070706
  2. CISPLATIN [Suspect]
     Indication: FALLOPIAN TUBE CANCER
     Dosage: DAILY DOSE:40MG
     Route: 042
     Dates: start: 20070706, end: 20070706
  3. SEROTONE [Suspect]
     Indication: PREMEDICATION
     Dosage: TEXT:1 DF
     Route: 042
     Dates: start: 20070706, end: 20070706
  4. DECADRON [Suspect]
     Indication: PREMEDICATION
     Route: 042
     Dates: start: 20070706, end: 20070706

REACTIONS (8)
  - DIARRHOEA [None]
  - HAEMOGLOBIN DECREASED [None]
  - HYPOAESTHESIA [None]
  - HYPOAESTHESIA ORAL [None]
  - LEUKOPENIA [None]
  - NEUTROPENIA [None]
  - PARAESTHESIA [None]
  - THROMBOCYTOPENIA [None]
